FAERS Safety Report 9606696 (Version 3)
Quarter: 2014Q1

REPORT INFORMATION
  Report Type: Spontaneous
  Country: US (occurrence: US)
  Receive Date: 20131008
  Receipt Date: 20140314
  Transmission Date: 20141002
  Serious: Yes (Hospitalization, Other)
  Sender: FDA-Public Use
  Company Number: US-AMGEN-USASP2013066411

PATIENT
  Age: 86 Year
  Sex: Male
  Weight: 76.64 kg

DRUGS (11)
  1. PROLIA [Suspect]
     Indication: OSTEOPOROSIS
     Dosage: 60 MG, Q6MO
     Route: 058
     Dates: start: 20130328
  2. ADVAIR [Concomitant]
  3. SPIRIVA [Concomitant]
  4. VIAGRA [Concomitant]
     Dosage: UNK UNK, AS NECESSARY
  5. ATORVASTATIN [Concomitant]
  6. POTASSIUM CHLORIDE [Concomitant]
     Dosage: UNK UNK, BID
  7. CENTRUM SILVER                     /02363801/ [Concomitant]
  8. VITAMIN D3 [Concomitant]
     Dosage: 1000 MG, UNK
  9. ADENOSINE [Concomitant]
  10. ESTER C                            /00008001/ [Concomitant]
  11. FISH OIL [Concomitant]

REACTIONS (8)
  - Brain stem stroke [Recovering/Resolving]
  - Dyspnoea [Recovering/Resolving]
  - Renal impairment [Unknown]
  - Blood creatinine increased [Unknown]
  - Hypoacusis [Unknown]
  - Local swelling [Unknown]
  - Blood disorder [Unknown]
  - Insomnia [Unknown]
